FAERS Safety Report 5543250-3 (Version None)
Quarter: 2007Q4

REPORT INFORMATION
  Report Type: 
  Country: None (occurrence: None)
  Receive Date: 20071210
  Receipt Date: 20071022
  Transmission Date: 20080405
  Serious: No
  Sender: FDA-Public Use
  Company Number: US-AMGEN-KDL247493

PATIENT
  Sex: Female

DRUGS (8)
  1. ENBREL [Suspect]
     Indication: RHEUMATOID ARTHRITIS
     Route: 058
     Dates: start: 20070219
  2. AZATHIOPRINE [Concomitant]
  3. OXYCODONE HCL [Concomitant]
  4. TRICOR [Concomitant]
  5. LEXAPRO [Concomitant]
  6. ZETIA [Concomitant]
  7. NEXIUM [Concomitant]
  8. XANAX [Concomitant]

REACTIONS (2)
  - DEPRESSION [None]
  - URINARY TRACT INFECTION [None]
